FAERS Safety Report 4457663-4 (Version None)
Quarter: 2004Q3

REPORT INFORMATION
  Report Type: 
  Country: None (occurrence: None)
  Receive Date: 20040922
  Receipt Date: 20040914
  Transmission Date: 20050211
  Serious: Yes (Other)
  Sender: FDA-Public Use
  Company Number: 2004-09-0654

PATIENT
  Sex: Female

DRUGS (2)
  1. TEMODAL [Suspect]
     Indication: CARCINOMA
     Dosage: SEE IMAGE
     Dates: end: 20040401
  2. TEMODAL [Suspect]
     Indication: CARCINOMA
     Dosage: SEE IMAGE
     Dates: start: 20040901

REACTIONS (2)
  - NEOPLASM [None]
  - TUBERCULOSIS [None]
